FAERS Safety Report 6250475-0 (Version None)
Quarter: 2009Q2

REPORT INFORMATION
  Report Type: 
  Country: None (occurrence: None)
  Receive Date: 20090630
  Receipt Date: 20090623
  Transmission Date: 20091009
  Serious: No
  Sender: FDA-Public Use
  Company Number: US-JNJFOC-20090608518

PATIENT
  Sex: Female
  Weight: 54.43 kg

DRUGS (6)
  1. DURAGESIC-100 [Suspect]
     Indication: PANCREATITIS
     Route: 062
  2. SYNTHROID [Concomitant]
     Indication: THYROID DISORDER
     Route: 048
  3. NORCO [Concomitant]
     Indication: PAIN
     Dosage: 5MG/325MG AS NEEDED
     Route: 048
  4. PRILOSEC [Concomitant]
     Indication: GASTRIC DISORDER
     Route: 048
  5. COMPAZINE [Concomitant]
     Indication: GASTRIC DISORDER
     Dosage: AS NEEDED
     Route: 048
  6. PANCRELIPASE [Concomitant]
     Indication: ENZYME ABNORMALITY
     Dosage: 4 CAPSULES WITH EACH MEAL
     Route: 048

REACTIONS (4)
  - APPLICATION SITE BURN [None]
  - APPLICATION SITE REACTION [None]
  - PRODUCT OUTER PACKAGING ISSUE [None]
  - WRONG TECHNIQUE IN DRUG USAGE PROCESS [None]
